FAERS Safety Report 12544023 (Version 2)
Quarter: 2016Q3

REPORT INFORMATION
  Report Type: Spontaneous
  Country: US (occurrence: US)
  Receive Date: 20160711
  Receipt Date: 20160815
  Transmission Date: 20161109
  Serious: Yes (Hospitalization, Other)
  Sender: FDA-Public Use
  Company Number: US-GLAXOSMITHKLINE-US2016097509

PATIENT
  Age: 63 Year
  Sex: Female

DRUGS (19)
  1. OMEGA-3-ACID ETHYL ESTERS. [Suspect]
     Active Substance: OMEGA-3-ACID ETHYL ESTERS
     Dosage: 2 G, BID
     Route: 048
     Dates: start: 2016
  2. AMLODIPINE [Concomitant]
     Active Substance: AMLODIPINE BESYLATE
  3. PANTOPRAZOLE [Concomitant]
     Active Substance: PANTOPRAZOLE SODIUM
  4. COCONUT OIL [Concomitant]
     Active Substance: COCONUT OIL
  5. LOVAZA [Suspect]
     Active Substance: OMEGA-3-ACID ETHYL ESTERS
     Dosage: 2 G, BID
     Route: 048
     Dates: start: 20160804
  6. METOPROLOL. [Concomitant]
     Active Substance: METOPROLOL
  7. NORVASC [Concomitant]
     Active Substance: AMLODIPINE BESYLATE
  8. NITROGLYCERIN. [Concomitant]
     Active Substance: NITROGLYCERIN
  9. AMBIEN [Concomitant]
     Active Substance: ZOLPIDEM TARTRATE
  10. ASPIRIN. [Concomitant]
     Active Substance: ASPIRIN
  11. HYDROCODONE [Concomitant]
     Active Substance: HYDROCODONE
  12. MAGNESIUM [Concomitant]
     Active Substance: MAGNESIUM
  13. PLAVIX [Concomitant]
     Active Substance: CLOPIDOGREL BISULFATE
  14. XANAX [Concomitant]
     Active Substance: ALPRAZOLAM
  15. OMEGA-3-ACID ETHYL ESTERS. [Suspect]
     Active Substance: OMEGA-3-ACID ETHYL ESTERS
     Indication: BLOOD TRIGLYCERIDES INCREASED
     Dosage: 2 G, BID
     Route: 048
  16. CRESTOR [Concomitant]
     Active Substance: ROSUVASTATIN CALCIUM
  17. LISINOPRIL. [Concomitant]
     Active Substance: LISINOPRIL
  18. LOVAZA [Suspect]
     Active Substance: OMEGA-3-ACID ETHYL ESTERS
     Indication: BLOOD TRIGLYCERIDES INCREASED
     Dosage: 2 G, BID
     Route: 048
     Dates: start: 2013
  19. BIOTIN [Concomitant]
     Active Substance: BIOTIN

REACTIONS (8)
  - Abdominal discomfort [Recovered/Resolved]
  - Arterial therapeutic procedure [Recovered/Resolved]
  - Speech disorder [Recovering/Resolving]
  - Diarrhoea [Unknown]
  - Carotid artery occlusion [Recovering/Resolving]
  - Flatulence [Recovering/Resolving]
  - Abdominal distension [Recovering/Resolving]
  - Nausea [Not Recovered/Not Resolved]

NARRATIVE: CASE EVENT DATE: 20160509
